FAERS Safety Report 6335496-1 (Version None)
Quarter: 2009Q3

REPORT INFORMATION
  Report Type: 
  Country: None (occurrence: None)
  Receive Date: 20090831
  Receipt Date: 20090817
  Transmission Date: 20100115
  Serious: Yes (Life-Threatening, Hospitalization, Disabling, Other)
  Sender: FDA-Public Use
  Company Number: GB-MYLANLABS-2009S1014738

PATIENT
  Age: 53 Year
  Sex: Female
  Weight: 89 kg

DRUGS (6)
  1. WARFARIN SODIUM [Suspect]
     Indication: CEREBROVASCULAR ACCIDENT PROPHYLAXIS
     Route: 048
     Dates: start: 19990101, end: 20030518
  2. ANTISTAX /01364601/ [Interacting]
     Indication: POOR PERIPHERAL CIRCULATION
     Dates: start: 20030512, end: 20030518
  3. ADIZEM-XL [Concomitant]
     Indication: HYPERTENSION
     Route: 048
  4. CITALOPRAM HYDROBROMIDE [Concomitant]
     Indication: DEPRESSION
     Route: 048
  5. LISINOPRIL [Concomitant]
     Indication: HYPERTENSION
     Route: 048
  6. LEVOTHYROXINE SODIUM [Concomitant]
     Indication: HYPOTHYROIDISM
     Route: 048

REACTIONS (2)
  - CEREBELLAR HAEMORRHAGE [None]
  - DRUG INTERACTION [None]
